FAERS Safety Report 23340794 (Version 1)
Quarter: 2023Q4

REPORT INFORMATION
  Report Type: Report from Study
  Country: JP (occurrence: JP)
  Receive Date: 20231227
  Receipt Date: 20231227
  Transmission Date: 20240110
  Serious: Yes (Other)
  Sender: FDA-Public Use
  Company Number: JP-RECORDATI RARE DISEASE INC.-2023009102

PATIENT

DRUGS (9)
  1. NEOPROFEN [Suspect]
     Active Substance: IBUPROFEN LYSINE
     Indication: Patent ductus arteriosus
     Dosage: 9 MG/DAY
     Route: 042
     Dates: start: 20190505, end: 20190505
  2. NEOPROFEN [Suspect]
     Active Substance: IBUPROFEN LYSINE
     Dosage: 4.5 MG/DAY
     Route: 042
     Dates: start: 20190507, end: 20190507
  3. NEOPROFEN [Suspect]
     Active Substance: IBUPROFEN LYSINE
     Dosage: 4.5 MG/DAY
     Route: 042
     Dates: start: 20190508, end: 20190508
  4. MORPHINE HYDROCHLORIDE [Concomitant]
     Active Substance: MORPHINE HYDROCHLORIDE
     Indication: Sedation
     Dosage: UNK
     Route: 042
     Dates: start: 20190504, end: 20190505
  5. MIDAZOLAM [Concomitant]
     Active Substance: MIDAZOLAM
     Indication: Pneumothorax
     Dosage: UNK
     Route: 042
     Dates: start: 20190505, end: 20190509
  6. PHENOBARBITAL SODIUM [Concomitant]
     Active Substance: PHENOBARBITAL SODIUM
     Indication: Sedation
     Dosage: UNK
     Route: 042
     Dates: start: 20190505, end: 20190505
  7. AMPICILLIN SODIUM [Concomitant]
     Active Substance: AMPICILLIN SODIUM
     Indication: Infection
     Dosage: UNK
     Route: 042
     Dates: start: 20190504
  8. GENTAMICIN SULFATE [Concomitant]
     Active Substance: GENTAMICIN SULFATE
     Indication: Infection
     Dosage: UNK
     Route: 042
     Dates: start: 20190504
  9. CAFFEINE [Concomitant]
     Active Substance: CAFFEINE
     Indication: Apnoeic attack
     Route: 042

REACTIONS (2)
  - Pneumothorax [Unknown]
  - Intraventricular haemorrhage [Recovering/Resolving]

NARRATIVE: CASE EVENT DATE: 20190506
